FAERS Safety Report 8503381-2 (Version None)
Quarter: 2012Q3

REPORT INFORMATION
  Report Type: 
  Country: None (occurrence: None)
  Receive Date: 20120711
  Receipt Date: 20120705
  Transmission Date: 20120928
  Serious: Yes (Other)
  Sender: FDA-Public Use
  Company Number: US-PFIZER INC-2012092394

PATIENT
  Sex: Female
  Weight: 122 kg

DRUGS (4)
  1. PRENATE DHA [Concomitant]
     Dosage: UNK
     Route: 048
     Dates: start: 20111122
  2. NORGESTREL AND ETHINYL ESTRADIOL [Suspect]
     Indication: CONTRACEPTION
     Dosage: UNK
     Route: 048
     Dates: start: 20110708
  3. VITAMIN D [Concomitant]
     Dosage: UNK
  4. CALCIUM [Concomitant]
     Dosage: UNK

REACTIONS (3)
  - DRUG INEFFECTIVE [None]
  - UNINTENDED PREGNANCY [None]
  - PRODUCT QUALITY ISSUE [None]
